FAERS Safety Report 4511313-7 (Version None)
Quarter: 2004Q4

REPORT INFORMATION
  Report Type: 
  Country: None (occurrence: None)
  Receive Date: 20041123
  Receipt Date: 20041123
  Transmission Date: 20050328
  Serious: Yes (Other)
  Sender: FDA-Public Use
  Company Number: None

PATIENT
  Age: 80 Year
  Sex: Male
  Weight: 83.5 kg

DRUGS (11)
  1. AVAPRO [Suspect]
  2. IRBESARTAN [Suspect]
  3. FOSINOPRIL NA [Concomitant]
  4. CLOPIDOGREL BISULATE [Concomitant]
  5. SIMVASTATIN [Concomitant]
  6. METROPOLOL TARTRATE [Concomitant]
  7. AMMONIUM LACTATE [Concomitant]
  8. OMEPRAZOLE [Concomitant]
  9. NIACIN (NIASPAN-KOS) [Concomitant]
  10. IRBESARIAN [Concomitant]
  11. FUROSEMIDE [Concomitant]

REACTIONS (2)
  - LACRIMATION INCREASED [None]
  - PRURITUS [None]
